FAERS Safety Report 13116854 (Version 2)
Quarter: 2017Q1

REPORT INFORMATION
  Report Type: Spontaneous
  Country: US (occurrence: US)
  Receive Date: 20170116
  Receipt Date: 20170324
  Transmission Date: 20170428
  Serious: Yes (Other)
  Sender: FDA-Public Use
  Company Number: US-PFIZER INC-2017015935

PATIENT
  Age: 66 Year
  Sex: Female
  Weight: 88.45 kg

DRUGS (10)
  1. IBRANCE [Suspect]
     Active Substance: PALBOCICLIB
     Indication: BREAST CANCER STAGE IV
     Dosage: 125 MG, UNK (125 MG, CAPSULE, ORAL, ONCE)
     Route: 048
     Dates: start: 20161212
  2. EZFE [Concomitant]
     Indication: IRON DEFICIENCY
     Dosage: 1 DF, 2X/DAY
  3. LEVOTHYROXINE. [Concomitant]
     Active Substance: LEVOTHYROXINE
     Indication: THYROID DISORDER
     Dosage: 125 MG, 1X/DAY
  4. PROPRANOLOL [Concomitant]
     Active Substance: PROPRANOLOL HYDROCHLORIDE
     Indication: CARDIAC DISORDER
     Dosage: 20 MG, 2X/DAY(FOR TWO VALVES )
  5. WARFARIN [Concomitant]
     Active Substance: WARFARIN
     Dosage: TAKING 2.5 MG ON THURSDAY, FRIDAY, SATURDAY AND SUNDAY AND 5 MG ON MONDAY, TUESDAY AND WEDNESDAY.
  6. HYDROCODONE [Concomitant]
     Active Substance: HYDROCODONE
     Dosage: 10/325 FOUR TIMES A DAY[HYDROCODONE, 10MG]/[ACETAMINOPHEN, 325MG]
  7. POTASSIUM CHLORIDE. [Concomitant]
     Active Substance: POTASSIUM CHLORIDE
     Dosage: 10 MG, DAILY
     Dates: start: 2006
  8. HUMIRA [Concomitant]
     Active Substance: ADALIMUMAB
     Dosage: 2.5 MG, 1X/DAY
  9. LASIX [Concomitant]
     Active Substance: FUROSEMIDE
     Dosage: 40 MG, 1X/DAY
  10. SOTALOL. [Concomitant]
     Active Substance: SOTALOL
     Dosage: 80 MG, ONE EVERY 12 HOURS

REACTIONS (2)
  - Neoplasm progression [Unknown]
  - White blood cell count decreased [Unknown]

NARRATIVE: CASE EVENT DATE: 20161228
